FAERS Safety Report 7864762-3 (Version None)
Quarter: 2011Q4

REPORT INFORMATION
  Report Type: 
  Country: None (occurrence: None)
  Receive Date: 20111028
  Receipt Date: 20111026
  Transmission Date: 20120403
  Serious: No
  Sender: FDA-Public Use
  Company Number: US-TEVA-306751USA

PATIENT
  Sex: Male
  Weight: 77.18 kg

DRUGS (4)
  1. PRAVASTATIN [Concomitant]
     Indication: HYPERCHOLESTEROLAEMIA
  2. CEPHALEXIN MONOHYDRATE [Concomitant]
     Indication: DEPRESSION
  3. AZILECT [Suspect]
     Indication: PARKINSON'S DISEASE
     Route: 048
     Dates: start: 20110701, end: 20110901
  4. SINEMET [Concomitant]
     Indication: PARKINSON'S DISEASE
     Dosage: 25/100 MG

REACTIONS (2)
  - VITREOUS FLOATERS [None]
  - FATIGUE [None]
